FAERS Safety Report 8262060-X (Version None)
Quarter: 2012Q2

REPORT INFORMATION
  Report Type: 
  Country: None (occurrence: None)
  Receive Date: 20120405
  Receipt Date: 20120329
  Transmission Date: 20120825
  Serious: Yes (Other)
  Sender: FDA-Public Use
  Company Number: PHHY2011FR107482

PATIENT
  Sex: Male
  Weight: 96 kg

DRUGS (7)
  1. REPAGLINIDE [Concomitant]
     Dosage: 2 DF, TID
  2. RASILEZ [Suspect]
     Dosage: 1 DF, QD IN THE EVENING
  3. TENORDATE [Concomitant]
     Dosage: 1 DF DAILY
  4. NEBIVOLOL HCL [Concomitant]
     Indication: HYPERTENSION
     Dosage: 1 DF, (0.75 DF IN THE MORNING AND 0.25 DF IN THE EVENING)
     Dates: start: 20100101
  5. LANTUS [Concomitant]
     Indication: DIABETES MELLITUS
     Dosage: 28 U/ML
  6. RASILEZ [Suspect]
     Dosage: 1 DF, BID
  7. RASILEZ [Suspect]
     Indication: HYPERTENSION
     Dosage: 1 DF, QD
     Route: 048
     Dates: start: 20111207, end: 20120315

REACTIONS (8)
  - HEADACHE [None]
  - NEURALGIA [None]
  - ERYTHEMA [None]
  - DRUG INEFFECTIVE [None]
  - NAUSEA [None]
  - BLOOD PRESSURE INCREASED [None]
  - OEDEMA PERIPHERAL [None]
  - FATIGUE [None]
